FAERS Safety Report 8107525-6 (Version None)
Quarter: 2012Q1

REPORT INFORMATION
  Report Type: 
  Country: None (occurrence: None)
  Receive Date: 20120202
  Receipt Date: 20120130
  Transmission Date: 20120608
  Serious: Yes (Death)
  Sender: FDA-Public Use
  Company Number: GT-ROCHE-1015914

PATIENT
  Sex: Female

DRUGS (1)
  1. XELODA [Suspect]
     Indication: COLON CANCER
     Route: 048
     Dates: start: 20111109

REACTIONS (4)
  - DECREASED APPETITE [None]
  - DISEASE PROGRESSION [None]
  - DIARRHOEA [None]
  - VOMITING [None]
